FAERS Safety Report 4548285-5 (Version None)
Quarter: 2005Q1

REPORT INFORMATION
  Report Type: 
  Country: None (occurrence: None)
  Receive Date: 20050106
  Receipt Date: 20050106
  Transmission Date: 20050727
  Serious: Yes (Hospitalization)
  Sender: FDA-Public Use
  Company Number: None

PATIENT
  Age: 62 Year
  Sex: Male

DRUGS (4)
  1. GEMFIBROZIL [Suspect]
     Indication: HYPERTRIGLYCERIDAEMIA
     Dosage: 600MG  PO BID
     Route: 048
     Dates: start: 20040903, end: 20041004
  2. OMEPRAZOLE [Concomitant]
  3. LOVASTATIN [Concomitant]
  4. GEMFIBROZIL [Concomitant]

REACTIONS (8)
  - ABDOMINAL PAIN UPPER [None]
  - BACK PAIN [None]
  - FATIGUE [None]
  - HAEMATURIA [None]
  - MOOD ALTERED [None]
  - PYREXIA [None]
  - STOMACH DISCOMFORT [None]
  - URINARY TRACT INFECTION [None]
